FAERS Safety Report 4536023-1 (Version None)
Quarter: 2005Q1

REPORT INFORMATION
  Report Type: 
  Country: None (occurrence: None)
  Receive Date: 20041216
  Receipt Date: 20031103
  Transmission Date: 20050727
  Serious: Yes (Death)
  Sender: FDA-Public Use
  Company Number: HQWYE156523JUL03

PATIENT
  Age: 10 Year
  Sex: Male
  Weight: 44.49 kg

DRUGS (16)
  1. EFFEXOR XR [Suspect]
     Indication: AGGRESSION
     Dosage: SEE IMAGE
     Route: 048
     Dates: start: 20020717, end: 20020725
  2. EFFEXOR XR [Suspect]
     Indication: ATTENTION DEFICIT/HYPERACTIVITY DISORDER
     Dosage: SEE IMAGE
     Route: 048
     Dates: start: 20020717, end: 20020725
  3. EFFEXOR XR [Suspect]
     Indication: CRYING
     Dosage: SEE IMAGE
     Route: 048
     Dates: start: 20020717, end: 20020725
  4. EFFEXOR XR [Suspect]
     Indication: DEPRESSION
     Dosage: SEE IMAGE
     Route: 048
     Dates: start: 20020717, end: 20020725
  5. EFFEXOR XR [Suspect]
     Indication: PSYCHOMOTOR HYPERACTIVITY
     Dosage: SEE IMAGE
     Route: 048
     Dates: start: 20020717, end: 20020725
  6. EFFEXOR XR [Suspect]
     Indication: AGGRESSION
     Dosage: SEE IMAGE
     Route: 048
     Dates: start: 20020726, end: 20020811
  7. EFFEXOR XR [Suspect]
     Indication: ATTENTION DEFICIT/HYPERACTIVITY DISORDER
     Dosage: SEE IMAGE
     Route: 048
     Dates: start: 20020726, end: 20020811
  8. EFFEXOR XR [Suspect]
     Indication: CRYING
     Dosage: SEE IMAGE
     Route: 048
     Dates: start: 20020726, end: 20020811
  9. EFFEXOR XR [Suspect]
     Indication: DEPRESSION
     Dosage: SEE IMAGE
     Route: 048
     Dates: start: 20020726, end: 20020811
  10. EFFEXOR XR [Suspect]
     Indication: PSYCHOMOTOR HYPERACTIVITY
     Dosage: SEE IMAGE
     Route: 048
     Dates: start: 20020726, end: 20020811
  11. EFFEXOR XR [Suspect]
     Indication: AGGRESSION
     Dosage: SEE IMAGE
     Route: 048
     Dates: start: 20020812, end: 20020813
  12. EFFEXOR XR [Suspect]
     Indication: ATTENTION DEFICIT/HYPERACTIVITY DISORDER
     Dosage: SEE IMAGE
     Route: 048
     Dates: start: 20020812, end: 20020813
  13. EFFEXOR XR [Suspect]
     Indication: CRYING
     Dosage: SEE IMAGE
     Route: 048
     Dates: start: 20020812, end: 20020813
  14. EFFEXOR XR [Suspect]
     Indication: DEPRESSION
     Dosage: SEE IMAGE
     Route: 048
     Dates: start: 20020812, end: 20020813
  15. EFFEXOR XR [Suspect]
     Indication: PSYCHOMOTOR HYPERACTIVITY
     Dosage: SEE IMAGE
     Route: 048
     Dates: start: 20020812, end: 20020813
  16. DIPHENHYDRAMINE HCL [Concomitant]

REACTIONS (3)
  - ABDOMINAL PAIN UPPER [None]
  - BLOOD PRESSURE INCREASED [None]
  - COMPLETED SUICIDE [None]
